FAERS Safety Report 8518010-1 (Version None)
Quarter: 2012Q3

REPORT INFORMATION
  Report Type: 
  Country: None (occurrence: None)
  Receive Date: 20120712
  Receipt Date: 20120712
  Transmission Date: 20120928
  Serious: Yes (Other)
  Sender: FDA-Public Use
  Company Number: None

PATIENT
  Sex: Female
  Weight: 81.6475 kg

DRUGS (2)
  1. NUVIGIL [Suspect]
     Indication: SOMNOLENCE
     Dates: start: 20090401, end: 20111101
  2. NUVIGIL [Suspect]
     Indication: FATIGUE
     Dates: start: 20090401, end: 20111101

REACTIONS (2)
  - ARTHRALGIA [None]
  - ARTHRITIS [None]
